FAERS Safety Report 8177972-5 (Version None)
Quarter: 2012Q1

REPORT INFORMATION
  Report Type: 
  Country: None (occurrence: None)
  Receive Date: 20120126
  Receipt Date: 20111212
  Transmission Date: 20120608
  Serious: No
  Sender: FDA-Public Use
  Company Number: PHEH2011US011479

PATIENT
  Age: 10 Year
  Sex: Female

DRUGS (10)
  1. PREVACID [Concomitant]
  2. DIASTAT [Concomitant]
  3. ZANTAC [Concomitant]
  4. INFUNIV [Concomitant]
  5. IRON [Concomitant]
  6. CLONAZEPAM [Concomitant]
  7. BANZEL [Concomitant]
  8. AFINITOR [Suspect]
     Indication: ASTROCYTOMA, LOW GRADE
     Dosage: 5 MG, DAILY
     Dates: start: 20110826
  9. RISPERDAL [Concomitant]
  10. LORATADINE SINGULAR [Concomitant]

REACTIONS (1)
  - EAR INFECTION [None]
